FAERS Safety Report 6464238-4 (Version None)
Quarter: 2009Q4

REPORT INFORMATION
  Report Type: 
  Country: None (occurrence: None)
  Receive Date: 20091201
  Receipt Date: 20091007
  Transmission Date: 20100525
  Serious: Yes (Other)
  Sender: FDA-Public Use
  Company Number: PHHY2009FR43626

PATIENT
  Age: 53 Year
  Sex: Female
  Weight: 55 kg

DRUGS (5)
  1. EXTAVIA [Suspect]
     Indication: MULTIPLE SCLEROSIS
     Dosage: UNK
     Route: 058
     Dates: start: 20090914
  2. EXTAVIA [Suspect]
     Dosage: 250 UG, QOD
     Route: 058
     Dates: start: 20091002
  3. DIFFU K [Concomitant]
  4. RIVOTRIL [Concomitant]
  5. IMOVANE [Concomitant]

REACTIONS (6)
  - ALANINE AMINOTRANSFERASE INCREASED [None]
  - FATIGUE [None]
  - GAIT DISTURBANCE [None]
  - MEMORY IMPAIRMENT [None]
  - PSYCHOMOTOR RETARDATION [None]
  - SPEECH DISORDER [None]
